FAERS Safety Report 6971525-X (Version None)
Quarter: 2010Q3

REPORT INFORMATION
  Report Type: 
  Country: None (occurrence: None)
  Receive Date: 20100908
  Receipt Date: 20100827
  Transmission Date: 20110219
  Serious: Yes (Death)
  Sender: FDA-Public Use
  Company Number: GXKR2010TW09772

PATIENT
  Age: 69 Year
  Sex: Female

DRUGS (5)
  1. FLUOROURACIL [Suspect]
     Indication: COLORECTAL CANCER METASTATIC
     Dosage: 400 MG/M2 BOLUS INFUSION ON DAY 1, EVERY 2 WEEKS
     Dates: start: 20090528
  2. FLUOROURACIL [Suspect]
     Dosage: 600 MG/M2 CONTINUOUS INFUSION FOR 22 HOURS ON DAYS 1 AND 2
     Dates: start: 20090528, end: 20090826
  3. OXALIPLATIN [Suspect]
     Indication: COLORECTAL CANCER METASTATIC
     Dosage: 85 MG/M2 ON DAY 1, EVERY 2 WEEKS
     Dates: start: 20090528
  4. LEUCOVORIN CALCIUM (NGX) [Suspect]
     Indication: COLORECTAL CANCER METASTATIC
     Dosage: 200 MG/M2 OVER 2 HOURS ON DAYS 1 AND 2, EVERY 2 WEEKS
     Dates: start: 20090528, end: 20090826
  5. CETUXIMAB [Suspect]
     Indication: COLORECTAL CANCER METASTATIC
     Dosage: FOR 2 H, ON DAY 1
     Dates: start: 20090528

REACTIONS (11)
  - ACUTE RESPIRATORY DISTRESS SYNDROME [None]
  - COUGH [None]
  - DYSPNOEA [None]
  - ENDOTRACHEAL INTUBATION [None]
  - FUNGAL INFECTION [None]
  - HYPOXIA [None]
  - INTERMITTENT POSITIVE PRESSURE BREATHING [None]
  - INTERSTITIAL LUNG DISEASE [None]
  - MECHANICAL VENTILATION [None]
  - RALES [None]
  - RESPIRATORY FAILURE [None]
